FAERS Safety Report 8462760-2 (Version None)
Quarter: 2012Q2

REPORT INFORMATION
  Report Type: 
  Country: None (occurrence: None)
  Receive Date: 20120625
  Receipt Date: 20120621
  Transmission Date: 20120825
  Serious: Yes (Death)
  Sender: FDA-Public Use
  Company Number: FR-ROCHE-1073804

PATIENT
  Age: 53 Year
  Sex: Male

DRUGS (10)
  1. INCIVO [Suspect]
     Indication: HEPATITIS C
     Dates: start: 20120120
  2. LEPTICUR [Concomitant]
  3. COPEGUS [Suspect]
     Indication: HEPATITIS C
     Dosage: DOSE DECREASED
     Dates: start: 20120120
  4. GLIMEPIRIDE [Concomitant]
  5. ASPIRIN [Concomitant]
  6. RISPERDAL [Concomitant]
  7. LANTUS [Concomitant]
  8. COPEGUS [Suspect]
     Dosage: INITIAL DOSE
  9. METFORMIN HCL [Concomitant]
  10. PEGINTERFERON ALFA-2A [Suspect]
     Indication: HEPATITIS C
     Dates: start: 20120120

REACTIONS (1)
  - DEATH [None]
